FAERS Safety Report 5487408-0 (Version None)
Quarter: 2007Q4

REPORT INFORMATION
  Report Type: 
  Country: None (occurrence: None)
  Receive Date: 20071016
  Receipt Date: 20071012
  Transmission Date: 20080405
  Serious: Yes (Hospitalization)
  Sender: FDA-Public Use
  Company Number: US-BOEHRINGER INGELHEIM PHARMACEUTICALS, INC.-2007-BP-18957BP

PATIENT
  Sex: Female

DRUGS (16)
  1. MIRAPEX [Suspect]
     Indication: PARKINSON'S DISEASE
     Route: 048
     Dates: start: 20040101
  2. MIRAPEX [Suspect]
     Indication: RESTLESS LEGS SYNDROME
     Route: 048
     Dates: start: 19980101
  3. CARBIDOPA- LEVO [Concomitant]
     Indication: PARKINSON'S DISEASE
     Route: 048
  4. CEPHALEXIN [Concomitant]
     Route: 048
  5. CLONAZEPAM [Concomitant]
     Route: 048
  6. LEVOXYL [Concomitant]
     Route: 048
  7. SERTRALINE HCL [Concomitant]
     Route: 048
  8. LEVIDOPALERO [Concomitant]
     Route: 048
  9. NABUMETONE [Concomitant]
     Route: 048
  10. TRIAMTERENE AND HYDROCHLOROTHIAZIDE [Concomitant]
     Route: 048
  11. SEROQUEL [Concomitant]
     Route: 048
  12. PRILOSEC [Concomitant]
     Route: 048
  13. CARBIDOPA/LDOPA [Concomitant]
  14. SENOKOT [Concomitant]
  15. ASPIRIN [Concomitant]
  16. CENTRUM SILVER [Concomitant]

REACTIONS (13)
  - ABDOMINAL PAIN UPPER [None]
  - ASTHENIA [None]
  - BACK PAIN [None]
  - BURNING SENSATION [None]
  - CARDIAC DISORDER [None]
  - CHEST DISCOMFORT [None]
  - DYSURIA [None]
  - MALAISE [None]
  - NECK PAIN [None]
  - PAIN [None]
  - PAIN IN EXTREMITY [None]
  - RASH [None]
  - SCAR [None]
